FAERS Safety Report 7605644-1 (Version None)
Quarter: 2011Q3

REPORT INFORMATION
  Report Type: 
  Country: None (occurrence: None)
  Receive Date: 20110713
  Receipt Date: 20110713
  Transmission Date: 20111222
  Serious: Yes (Other)
  Sender: FDA-Public Use
  Company Number: None

PATIENT
  Age: 63 Year
  Sex: Female
  Weight: 66.224 kg

DRUGS (2)
  1. BONIVA [Suspect]
     Indication: OSTEOPOROSIS
     Dosage: 150 MG
     Route: 048
     Dates: start: 20100310, end: 20110712
  2. ACTONEL [Concomitant]
     Indication: OSTEOPOROSIS
     Dosage: 35 MG
     Route: 048
     Dates: start: 20040102, end: 20100310

REACTIONS (5)
  - STRESS FRACTURE [None]
  - FEMUR FRACTURE [None]
  - BONE PAIN [None]
  - IMPAIRED HEALING [None]
  - FRACTURE DELAYED UNION [None]
